FAERS Safety Report 6097146-1 (Version None)
Quarter: 2009Q1

REPORT INFORMATION
  Report Type: 
  Country: None (occurrence: None)
  Receive Date: 20090227
  Receipt Date: 20090223
  Transmission Date: 20090719
  Serious: Yes (Hospitalization)
  Sender: FDA-Public Use
  Company Number: CA-AMGEN-KDL311295

PATIENT
  Sex: Female
  Weight: 90.8 kg

DRUGS (2)
  1. ENBREL [Suspect]
     Indication: TEMPORAL ARTERITIS
     Route: 058
     Dates: start: 20080915, end: 20081124
  2. PREDNISONE [Suspect]
     Dates: start: 20070901

REACTIONS (5)
  - DRUG INEFFECTIVE [None]
  - LISTERIOSIS [None]
  - OPEN WOUND [None]
  - PRURITUS [None]
  - SKIN LACERATION [None]
